FAERS Safety Report 23242601 (Version 2)
Quarter: 2023Q4

REPORT INFORMATION
  Report Type: Spontaneous
  Country: CY (occurrence: CY)
  Receive Date: 20231129
  Receipt Date: 20231208
  Transmission Date: 20240110
  Serious: Yes (Hospitalization)
  Sender: FDA-Public Use
  Company Number: CY-MYLANLABS-2023M1126275

PATIENT
  Age: 49 Year
  Sex: Male

DRUGS (1)
  1. XANAX [Suspect]
     Active Substance: ALPRAZOLAM
     Indication: Anxiety
     Dosage: 0.5 DOSAGE FORM, QD
     Route: 065
     Dates: start: 20231122

REACTIONS (3)
  - Eye swelling [Not Recovered/Not Resolved]
  - Vomiting [Unknown]
  - Laryngeal oedema [Unknown]
